FAERS Safety Report 8359417-5 (Version None)
Quarter: 2012Q2

REPORT INFORMATION
  Report Type: 
  Country: None (occurrence: None)
  Receive Date: 20120515
  Receipt Date: 20120507
  Transmission Date: 20120825
  Serious: Yes (Hospitalization)
  Sender: FDA-Public Use
  Company Number: US-US-EMD SERONO, INC.-7128636

PATIENT
  Sex: Female
  Weight: 96 kg

DRUGS (9)
  1. ALBUTEROL [Concomitant]
     Indication: ASTHMA
  2. CLONAZEPAM [Concomitant]
     Indication: PRODUCT USED FOR UNKNOWN INDICATION
  3. REBIF [Suspect]
     Indication: RELAPSING-REMITTING MULTIPLE SCLEROSIS
     Route: 058
     Dates: start: 20070118, end: 20110801
  4. ANTIVERT [Concomitant]
     Indication: PRODUCT USED FOR UNKNOWN INDICATION
  5. BENADRYL [Concomitant]
     Indication: PRODUCT USED FOR UNKNOWN INDICATION
  6. PREDNISONE [Concomitant]
     Indication: ASTHMA
  7. CENTRUM [Concomitant]
     Indication: PRODUCT USED FOR UNKNOWN INDICATION
  8. METOPROLOL TARTRATE [Concomitant]
     Indication: PRODUCT USED FOR UNKNOWN INDICATION
     Dosage: EXTENDED RELEASE
  9. FLOVENT [Concomitant]
     Indication: ASTHMA

REACTIONS (10)
  - ARTERIOSPASM CORONARY [None]
  - ASTHMA [None]
  - NASOPHARYNGITIS [None]
  - BALANCE DISORDER [None]
  - HEADACHE [None]
  - BRONCHITIS [None]
  - DEHYDRATION [None]
  - HYPOAESTHESIA [None]
  - HYPOGLYCAEMIA [None]
  - HEPATIC ENZYME INCREASED [None]
